FAERS Safety Report 7783263-4 (Version None)
Quarter: 2011Q3

REPORT INFORMATION
  Report Type: 
  Country: None (occurrence: None)
  Receive Date: 20110928
  Receipt Date: 20110916
  Transmission Date: 20111222
  Serious: Yes (Other)
  Sender: FDA-Public Use
  Company Number: CA-JNJFOC-20110809600

PATIENT
  Sex: Male
  Weight: 83 kg

DRUGS (14)
  1. REMICADE [Suspect]
     Dosage: 100MG/VIAL
     Route: 042
     Dates: start: 20110711
  2. ASPIRIN [Concomitant]
     Route: 048
  3. ADALAT [Concomitant]
     Route: 048
  4. REMICADE [Suspect]
     Dosage: 100MG/VIAL
     Route: 042
     Dates: start: 20110128
  5. REMICADE [Suspect]
     Dosage: 100MG/VIAL
     Route: 042
     Dates: start: 20101118
  6. COLCHICINE [Concomitant]
     Route: 048
  7. ATACAND [Concomitant]
     Route: 048
  8. REMICADE [Suspect]
     Dosage: 100MG/VIAL
     Route: 042
     Dates: start: 20100928
  9. REMICADE [Suspect]
     Dosage: 100MG/VIAL
     Route: 042
     Dates: start: 20110321
  10. REMICADE [Suspect]
     Dosage: 100MG/VIAL
     Route: 042
     Dates: start: 20110513
  11. CRESTOR [Concomitant]
     Route: 048
  12. REMICADE [Suspect]
     Indication: PSORIASIS
     Dosage: 100MG/VIAL
     Route: 042
     Dates: start: 20100906
  13. REMICADE [Suspect]
     Dosage: 100MG/VIAL
     Route: 042
     Dates: start: 20101014
  14. METFORMIN HCL [Concomitant]
     Route: 048

REACTIONS (1)
  - PROSTATE CANCER [None]
